FAERS Safety Report 5339050-X (Version None)
Quarter: 2007Q2

REPORT INFORMATION
  Report Type: 
  Country: None (occurrence: None)
  Receive Date: 20070330
  Receipt Date: 20060908
  Transmission Date: 20071010
  Serious: Yes (Other)
  Sender: FDA-Public Use
  Company Number: 2006UW17745

PATIENT
  Age: 34 Year
  Sex: Male

DRUGS (4)
  1. LISINOPRIL [Suspect]
     Dosage: 4 DF DAILY PO
     Route: 048
  2. PREDNISONE [Suspect]
     Indication: LABYRINTHITIS
     Dosage: 80 MG QAM PO
     Route: 048
  3. PREDNISONE [Suspect]
     Indication: LABYRINTHITIS
     Dosage: 60 MG QAM PO
     Route: 048
  4. VALTREX [Concomitant]

REACTIONS (2)
  - FATIGUE [None]
  - MEDICATION ERROR [None]
